FAERS Safety Report 16656330 (Version 1)
Quarter: 2019Q3

REPORT INFORMATION
  Report Type: Spontaneous
  Country: US (occurrence: US)
  Receive Date: 20190801
  Receipt Date: 20190801
  Transmission Date: 20191004
  Serious: No
  Sender: FDA-Public Use
  Company Number: US-PACIRA-201600120

PATIENT
  Sex: Female
  Weight: 65 kg

DRUGS (1)
  1. EXPAREL [Suspect]
     Active Substance: BUPIVACAINE
     Indication: POSTOPERATIVE ANALGESIA
     Dosage: 2 VIALS AS A FIELD INJECTION, FREQUENCY : 1X
     Route: 050
     Dates: start: 20161111, end: 20161111

REACTIONS (2)
  - Overdose [Unknown]
  - Pain [Unknown]

NARRATIVE: CASE EVENT DATE: 20161111
